FAERS Safety Report 7308072-1 (Version None)
Quarter: 2011Q1

REPORT INFORMATION
  Report Type: 
  Country: None (occurrence: None)
  Receive Date: 20110223
  Receipt Date: 20100602
  Transmission Date: 20110831
  Serious: Yes (Hospitalization, Other)
  Sender: FDA-Public Use
  Company Number: US-BAYER-200942475NA

PATIENT
  Sex: Female
  Weight: 49.887 kg

DRUGS (5)
  1. YASMIN [Suspect]
     Indication: ACNE
  2. MEPERIDINE HCL [Concomitant]
     Dosage: 12 MG, QID
     Route: 042
     Dates: start: 20061116
  3. YASMIN [Suspect]
     Indication: CONTRACEPTION
     Dosage: UNK
     Dates: start: 20060614, end: 20061116
  4. ZOFRAN [Concomitant]
     Dosage: 4 MG, QID
     Route: 042
  5. YASMIN [Suspect]
     Indication: PREMENSTRUAL SYNDROME

REACTIONS (3)
  - PLEURITIC PAIN [None]
  - PULMONARY EMBOLISM [None]
  - DYSPNOEA [None]
